FAERS Safety Report 19732280 (Version 1)
Quarter: 2021Q3

REPORT INFORMATION
  Report Type: Spontaneous
  Country: CN (occurrence: CN)
  Receive Date: 20210820
  Receipt Date: 20210820
  Transmission Date: 20211014
  Serious: Yes (Other)
  Sender: FDA-Public Use
  Company Number: CN-BAXTER-2021BAX025647

PATIENT
  Age: 52 Year
  Sex: Female
  Weight: 65 kg

DRUGS (5)
  1. 0.9% SODIUM CHLORIDE INJECTION [Suspect]
     Active Substance: SODIUM CHLORIDE
     Indication: MEDICATION DILUTION
     Dosage: DAY 1: ENDOXAN 1000 MG + 0.9% SODIUM CHLORIDE 100 ML; Q14D
     Route: 041
     Dates: start: 20210724, end: 20210724
  2. ENDOXAN [Suspect]
     Active Substance: CYCLOPHOSPHAMIDE
     Indication: BREAST CANCER
     Dosage: DAY 1: ENDOXAN 1000 MG + 0.9% SODIUM CHLORIDE 100 ML; Q14D
     Route: 041
     Dates: start: 20210724, end: 20210724
  3. 5% GLUCOSE  INJECTION [Suspect]
     Active Substance: DEXTROSE
     Indication: MEDICATION DILUTION
     Dosage: DAY 1: PIRARUBICIN HYDROCHLORIDE 100 MG + 5% GLUCOSE INJECTION 100ML; Q14D
     Route: 041
     Dates: start: 20210724, end: 20210724
  4. RECOMBINANT HUMAN GRANULOCYTE COLONY?STIMULATING FACTOR [Concomitant]
     Active Substance: GRANULOCYTE COLONY-STIMULATING FACTOR NOS
     Indication: PROPHYLAXIS
     Dosage: 4 BRANCHES
     Route: 058
     Dates: start: 20210725
  5. PIRARUBICIN HYDROCHLORIDE [Suspect]
     Active Substance: PIRARUBICIN HYDROCHLORIDE
     Indication: BREAST CANCER
     Dosage: DAY 1: PIRARUBICIN HYDROCHLORIDE 100 MG + 5% GLUCOSE INJECTION 100ML; Q14D
     Route: 041
     Dates: start: 20210724, end: 20210724

REACTIONS (1)
  - Myelosuppression [Recovered/Resolved]

NARRATIVE: CASE EVENT DATE: 20210801
